FAERS Safety Report 15235699 (Version 1)
Quarter: 2018Q3

REPORT INFORMATION
  Report Type: Spontaneous
  Country: US (occurrence: US)
  Receive Date: 20180803
  Receipt Date: 20180803
  Transmission Date: 20181010
  Serious: Yes (Other)
  Sender: FDA-Public Use
  Company Number: US-ROCHE-2164383

PATIENT
  Sex: Female

DRUGS (1)
  1. ACTEMRA [Suspect]
     Active Substance: TOCILIZUMAB
     Indication: RHEUMATOID ARTHRITIS
     Dosage: STRENGTH: 162MG/0.9ML, ONGOING: YES
     Route: 058
     Dates: start: 20150730

REACTIONS (3)
  - Hypertension [Unknown]
  - Hyperlipidaemia [Unknown]
  - Cardiac disorder [Unknown]
